FAERS Safety Report 24013683 (Version 1)
Quarter: 2024Q2

REPORT INFORMATION
  Report Type: Spontaneous
  Country: FR (occurrence: FR)
  Receive Date: 20240626
  Receipt Date: 20240626
  Transmission Date: 20240716
  Serious: Yes (Other)
  Sender: FDA-Public Use
  Company Number: None

PATIENT
  Age: 64 Year
  Sex: Female

DRUGS (16)
  1. CARBOPLATIN [Interacting]
     Active Substance: CARBOPLATIN
     Indication: Endometrial cancer
     Dates: start: 20240122, end: 20240122
  2. PACLITAXEL [Interacting]
     Active Substance: PACLITAXEL
     Indication: Endometrial cancer
     Dates: start: 20240122, end: 20240122
  3. DOSTARLIMAB [Interacting]
     Active Substance: DOSTARLIMAB
     Indication: Endometrial cancer
     Dates: start: 20240313, end: 20240313
  4. CARBOPLATIN [Interacting]
     Active Substance: CARBOPLATIN
     Indication: Endometrial cancer
     Dates: start: 20240313, end: 20240313
  5. CARBOPLATIN [Interacting]
     Active Substance: CARBOPLATIN
     Indication: Endometrial cancer
     Dates: start: 20240215, end: 20240215
  6. CARBOPLATIN [Interacting]
     Active Substance: CARBOPLATIN
     Indication: Endometrial cancer
     Dates: start: 20240403, end: 20240403
  7. CARBOPLATIN [Interacting]
     Active Substance: CARBOPLATIN
     Indication: Endometrial cancer
     Dates: start: 20240424, end: 20240424
  8. CARBOPLATIN [Interacting]
     Active Substance: CARBOPLATIN
     Indication: Endometrial cancer
     Dates: start: 20240313, end: 20240313
  9. DOSTARLIMAB [Interacting]
     Active Substance: DOSTARLIMAB
     Indication: Endometrial cancer
     Dates: start: 20240215, end: 20240215
  10. DOSTARLIMAB [Interacting]
     Active Substance: DOSTARLIMAB
     Indication: Endometrial cancer
     Dates: start: 20240122, end: 20240122
  11. DOSTARLIMAB [Interacting]
     Active Substance: DOSTARLIMAB
     Indication: Endometrial cancer
     Dates: start: 20240403, end: 20240403
  12. DOSTARLIMAB [Interacting]
     Active Substance: DOSTARLIMAB
     Indication: Endometrial cancer
     Dates: start: 20240424, end: 20240424
  13. PACLITAXEL [Interacting]
     Active Substance: PACLITAXEL
     Indication: Endometrial cancer
     Dates: start: 20240403, end: 20240403
  14. PACLITAXEL [Interacting]
     Active Substance: PACLITAXEL
     Indication: Endometrial cancer
     Dates: start: 20240215, end: 20240215
  15. PACLITAXEL [Interacting]
     Active Substance: PACLITAXEL
     Indication: Endometrial cancer
     Dates: start: 20240313, end: 20240313
  16. PACLITAXEL [Interacting]
     Active Substance: PACLITAXEL
     Indication: Endometrial cancer
     Dates: start: 20240424, end: 20240424

REACTIONS (2)
  - Asthenia [Recovering/Resolving]
  - Pancytopenia [Recovering/Resolving]

NARRATIVE: CASE EVENT DATE: 20240513
